FAERS Safety Report 5829242-5 (Version None)
Quarter: 2008Q3

REPORT INFORMATION
  Report Type: 
  Country: None (occurrence: None)
  Receive Date: 20080731
  Receipt Date: 20080724
  Transmission Date: 20090109
  Serious: Yes (Hospitalization)
  Sender: FDA-Public Use
  Company Number: US-BOEHRINGER INGELHEIM GMBH, GERMANY-2008-BP-10021BP

PATIENT
  Age: 43 Year
  Sex: Female

DRUGS (5)
  1. MIRAPEX [Suspect]
     Indication: RESTLESS LEGS SYNDROME
     Route: 048
     Dates: start: 20050101
  2. DEPAKOTE [Suspect]
     Dates: start: 20080604, end: 20080604
  3. KEPPRA [Concomitant]
  4. CLONAZEPAM [Concomitant]
  5. ZOLOFT [Concomitant]

REACTIONS (2)
  - EPILEPSY [None]
  - SELF-MEDICATION [None]
